FAERS Safety Report 11847694 (Version 2)
Quarter: 2016Q1

REPORT INFORMATION
  Report Type: Report from Study
  Country: JP (occurrence: JP)
  Receive Date: 20151217
  Receipt Date: 20160122
  Transmission Date: 20160526
  Serious: Yes (Death)
  Sender: FDA-Public Use
  Company Number: JP-NOVOPROD-473009

PATIENT
  Age: 59 Year
  Sex: Male
  Weight: 70 kg

DRUGS (14)
  1. IDEG [Suspect]
     Active Substance: INSULIN DEGLUDEC
     Dosage: 4 U, QD
     Route: 058
     Dates: start: 20141017
  2. IDEG [Suspect]
     Active Substance: INSULIN DEGLUDEC
     Dosage: 5 U, QD
     Route: 058
     Dates: start: 20141106
  3. IDEG [Suspect]
     Active Substance: INSULIN DEGLUDEC
     Indication: TYPE 2 DIABETES MELLITUS
     Dosage: 03 U, QD
     Route: 058
     Dates: start: 20140909
  4. IDEG [Suspect]
     Active Substance: INSULIN DEGLUDEC
     Dosage: 7 U, QD
     Route: 058
     Dates: start: 20141230
  5. REZALTAS [Concomitant]
     Active Substance: AZELNIDIPINE\OLMESARTAN MEDOXOMIL
     Dosage: 1 TAB
     Route: 048
  6. METGLUCO [Concomitant]
     Active Substance: METFORMIN HYDROCHLORIDE
     Indication: TYPE 2 DIABETES MELLITUS
     Dosage: 1000 MG
     Route: 048
  7. LIVALO [Concomitant]
     Active Substance: PITAVASTATIN CALCIUM
     Dosage: 2 MG
     Route: 048
  8. ZYLORIC [Concomitant]
     Active Substance: ALLOPURINOL
     Dosage: 100 MG
     Route: 048
  9. IDEG [Suspect]
     Active Substance: INSULIN DEGLUDEC
     Dosage: 10 U, QD
     Route: 058
     Dates: start: 20150224
  10. IDEG [Suspect]
     Active Substance: INSULIN DEGLUDEC
     Dosage: 11 U, QD
     Route: 058
     Dates: start: 20150428
  11. IDEG [Suspect]
     Active Substance: INSULIN DEGLUDEC
     Dosage: 12 U, QD
     Route: 058
     Dates: start: 20150526
  12. FLUITRAN [Concomitant]
     Active Substance: TRICHLORMETHIAZIDE
     Dosage: 0.50 MG
     Route: 048
  13. IDEG [Suspect]
     Active Substance: INSULIN DEGLUDEC
     Dosage: 06 U, QD
     Route: 058
     Dates: start: 20141202
  14. VICTOZA [Suspect]
     Active Substance: LIRAGLUTIDE
     Indication: TYPE 2 DIABETES MELLITUS
     Dosage: 0.9 MG, QD
     Route: 058
     Dates: start: 2012

REACTIONS (1)
  - Interstitial lung disease [Fatal]

NARRATIVE: CASE EVENT DATE: 20151204
